FAERS Safety Report 4843771-2 (Version None)
Quarter: 2005Q4

REPORT INFORMATION
  Report Type: 
  Country: None (occurrence: None)
  Receive Date: 20051202
  Receipt Date: 20051113
  Transmission Date: 20060501
  Serious: Yes (Hospitalization)
  Sender: FDA-Public Use
  Company Number: DE-AVENTIS-200512581DE

PATIENT
  Age: 46 Year
  Sex: Female
  Weight: 68 kg

DRUGS (4)
  1. KETEK [Suspect]
     Indication: SINUSITIS
     Route: 048
     Dates: start: 20051101, end: 20051101
  2. KETEK [Suspect]
     Indication: BRONCHITIS
     Route: 048
     Dates: start: 20051101, end: 20051101
  3. CEC [Concomitant]
     Indication: SINUSITIS
     Dates: start: 20051030, end: 20051101
  4. CEC [Concomitant]
     Indication: BRONCHITIS
     Dates: start: 20051030, end: 20051101

REACTIONS (15)
  - ABDOMINAL PAIN UPPER [None]
  - BLOOD FIBRINOGEN INCREASED [None]
  - BLOOD GLUCOSE INCREASED [None]
  - BLOOD PRESSURE INCREASED [None]
  - COMPULSIONS [None]
  - HYPERHIDROSIS [None]
  - HYPERSENSITIVITY [None]
  - LEUKOCYTOSIS [None]
  - MEAN CELL VOLUME INCREASED [None]
  - PLATELET COUNT INCREASED [None]
  - PROTHROMBIN TIME SHORTENED [None]
  - PRURITUS [None]
  - RASH [None]
  - RESTLESSNESS [None]
  - TACHYCARDIA [None]
